FAERS Safety Report 8584163 (Version 2)
Quarter: 2013Q2

REPORT INFORMATION
  Report Type: Spontaneous
  Country: JP (occurrence: JP)
  Receive Date: 20120529
  Receipt Date: 20130529
  Transmission Date: 20140414
  Serious: Yes (Other)
  Sender: FDA-Public Use
  Company Number: PHHY2012JP044294

PATIENT
  Age: 72 Year
  Sex: Female

DRUGS (4)
  1. CARBOPLATIN [Suspect]
     Indication: LUNG ADENOCARCINOMA RECURRENT
  2. PACLITAXEL [Suspect]
     Indication: LUNG ADENOCARCINOMA RECURRENT
  3. VINORELBINE [Suspect]
     Indication: LUNG ADENOCARCINOMA RECURRENT
  4. GEFITINIB [Suspect]
     Indication: LUNG ADENOCARCINOMA RECURRENT

REACTIONS (2)
  - Acute myeloid leukaemia [Unknown]
  - Pancytopenia [Unknown]
